FAERS Safety Report 7892952-2 (Version None)
Quarter: 2011Q4

REPORT INFORMATION
  Report Type: 
  Country: None (occurrence: None)
  Receive Date: 20111104
  Receipt Date: 20110830
  Transmission Date: 20120403
  Serious: No
  Sender: FDA-Public Use
  Company Number: US-MYLANLABS-2011S1018216

PATIENT
  Sex: Female

DRUGS (1)
  1. PAROXETINE HCL [Suspect]

REACTIONS (4)
  - NAUSEA [None]
  - HEADACHE [None]
  - PAIN IN EXTREMITY [None]
  - FEELING ABNORMAL [None]
